FAERS Safety Report 5508007-8 (Version None)
Quarter: 2007Q4

REPORT INFORMATION
  Report Type: 
  Country: None (occurrence: None)
  Receive Date: 20071106
  Receipt Date: 20071029
  Transmission Date: 20080405
  Serious: Yes (Other)
  Sender: FDA-Public Use
  Company Number: US-AMGEN-KDL242688

PATIENT
  Sex: Female
  Weight: 54.5 kg

DRUGS (11)
  1. ENBREL [Suspect]
     Indication: RHEUMATOID ARTHRITIS
     Route: 058
     Dates: start: 20010409, end: 20070806
  2. METHOTREXATE [Concomitant]
     Route: 048
     Dates: start: 20020228
  3. CELEBREX [Concomitant]
     Route: 048
     Dates: start: 20001016, end: 20070806
  4. MOBIC [Concomitant]
     Route: 048
     Dates: start: 20020718
  5. PREDNISONE [Concomitant]
     Route: 048
     Dates: start: 20010409
  6. NORCO [Concomitant]
  7. ARAVA [Concomitant]
     Dates: start: 20020101
  8. AMOXICILLIN [Concomitant]
  9. ZYBAN [Concomitant]
  10. WELLBUTRIN [Concomitant]
  11. PLAQUENIL [Concomitant]

REACTIONS (13)
  - ARTHROPATHY [None]
  - CYST [None]
  - FATIGUE [None]
  - FEELING HOT [None]
  - GASTROINTESTINAL PAIN [None]
  - HYPOAESTHESIA [None]
  - INCISIONAL HERNIA [None]
  - LIVEDO RETICULARIS [None]
  - LUPUS-LIKE SYNDROME [None]
  - OSTEOPOROSIS [None]
  - PAIN IN EXTREMITY [None]
  - STOMACH DISCOMFORT [None]
  - SYNOVITIS [None]
